FAERS Safety Report 24813083 (Version 2)
Quarter: 2025Q1

REPORT INFORMATION
  Report Type: Spontaneous
  Country: US (occurrence: US)
  Receive Date: 20250107
  Receipt Date: 20250107
  Transmission Date: 20250409
  Serious: Yes (Other)
  Sender: ROCHE
  Company Number: US-ROCHE-10000168620

PATIENT
  Sex: Female

DRUGS (3)
  1. TRASTUZUMAB [Suspect]
     Active Substance: TRASTUZUMAB
     Indication: Product used for unknown indication
     Route: 065
     Dates: start: 20220929
  2. CAPECITABINE [Suspect]
     Active Substance: CAPECITABINE
     Indication: Product used for unknown indication
     Route: 065
     Dates: start: 20220929
  3. TUKYSA [Suspect]
     Active Substance: TUCATINIB
     Indication: Product used for unknown indication
     Route: 048
     Dates: start: 20220929

REACTIONS (13)
  - Hypertension [Unknown]
  - Adjustment disorder with depressed mood [Unknown]
  - Hypothyroidism [Unknown]
  - Anxiety disorder [Unknown]
  - Anaemia [Unknown]
  - Adenoma benign [Unknown]
  - Respiratory syncytial virus infection [Unknown]
  - Herpes zoster [Unknown]
  - Dry skin [Unknown]
  - Gilbert^s syndrome [Unknown]
  - Squamous cell carcinoma [Unknown]
  - Diarrhoea [Unknown]
  - Haemorrhoids [Unknown]
